FAERS Safety Report 16462644 (Version 1)
Quarter: 2019Q2

REPORT INFORMATION
  Report Type: Spontaneous
  Country: DE (occurrence: DE)
  Receive Date: 20190621
  Receipt Date: 20190621
  Transmission Date: 20190711
  Serious: Yes (Other)
  Sender: FDA-Public Use
  Company Number: DE-TORRENT-00005858

PATIENT
  Age: 1 Day
  Sex: Male
  Weight: 2 kg

DRUGS (2)
  1. FOLIO (NAHRUNGSERGAENZUNGSMITTEL) [Concomitant]
     Indication: VITAMIN SUPPLEMENTATION
     Dosage: 0.4 [MG/D ]
     Dates: start: 20160129, end: 20160811
  2. TOPIRAMATE. [Suspect]
     Active Substance: TOPIRAMATE
     Indication: EPILEPSY
     Dosage: 125 [MG/D ]/ INITIALLY 4X25MG/D, FROM GW 29+6: 5X 25MG/D
     Dates: start: 20151103, end: 20160811

REACTIONS (2)
  - Microcephaly [Unknown]
  - Small for dates baby [Unknown]

NARRATIVE: CASE EVENT DATE: 20160811
